FAERS Safety Report 5344112-7 (Version None)
Quarter: 2007Q2

REPORT INFORMATION
  Report Type: 
  Country: None (occurrence: None)
  Receive Date: 20070416
  Receipt Date: 20070130
  Transmission Date: 20071010
  Serious: No
  Sender: FDA-Public Use
  Company Number: 2007SP000342

PATIENT
  Age: 62 Year
  Sex: Male
  Weight: 70.3075 kg

DRUGS (5)
  1. LUNESTA [Suspect]
     Indication: INSOMNIA
     Dosage: 3 MG; ORAL
     Route: 048
     Dates: start: 20061101
  2. NEXIUM [Concomitant]
  3. ALEVE [Concomitant]
  4. SELEGILINE HCL [Concomitant]
  5. CARBIDOPA W/LEVODOPA [Concomitant]

REACTIONS (1)
  - DRUG EFFECT DECREASED [None]
